FAERS Safety Report 15524089 (Version 3)
Quarter: 2019Q1

REPORT INFORMATION
  Report Type: Report from Study
  Country: CA (occurrence: CA)
  Receive Date: 20181018
  Receipt Date: 20190124
  Transmission Date: 20190417
  Serious: Yes (Hospitalization, Other)
  Sender: FDA-Public Use
  Company Number: CA-TAKEDA-2018TUS024572

PATIENT
  Age: 33 Year
  Sex: Male

DRUGS (4)
  1. METHOTREXATE. [Concomitant]
     Active Substance: METHOTREXATE
     Dosage: UNK, 1/WEEK
  2. FOLIC ACID. [Concomitant]
     Active Substance: FOLIC ACID
     Dosage: UNK
  3. VEDOLIZUMAB [Suspect]
     Active Substance: VEDOLIZUMAB
     Indication: CROHN^S DISEASE
     Dosage: 300 MILLIGRAM
     Route: 042
     Dates: start: 20180515
  4. PREDNISONE. [Concomitant]
     Active Substance: PREDNISONE
     Dosage: UNK
     Dates: start: 20180511

REACTIONS (8)
  - Weight decreased [Unknown]
  - Pleural effusion [Unknown]
  - Abscess [Not Recovered/Not Resolved]
  - Visual impairment [Unknown]
  - Asthenia [Unknown]
  - Crohn^s disease [Not Recovered/Not Resolved]
  - Intra-abdominal fluid collection [Unknown]
  - Feeling cold [Unknown]

NARRATIVE: CASE EVENT DATE: 2018
